FAERS Safety Report 7136170-4 (Version None)
Quarter: 2010Q4

REPORT INFORMATION
  Report Type: 
  Country: None (occurrence: None)
  Receive Date: 20101206
  Receipt Date: 20091021
  Transmission Date: 20110411
  Serious: Yes (Death)
  Sender: FDA-Public Use
  Company Number: US-ACTELION-A-US2006-15083

PATIENT

DRUGS (12)
  1. ILOPROST INHALATION SOLUTION 5UG US [Suspect]
     Indication: PULMONARY ARTERIAL HYPERTENSION
     Dosage: 5 UG, 6-9 X DAY
     Route: 055
     Dates: start: 20060824, end: 20070621
  2. TRACLEER [Suspect]
     Indication: PULMONARY HYPERTENSION
     Route: 048
  3. ISOSORBIDE MONONITRATE [Concomitant]
  4. DIGOXIN [Concomitant]
  5. DILTIAZEM [Concomitant]
  6. POTASSIUM CHLORIDE [Concomitant]
  7. FUROSEMIDE [Concomitant]
  8. WARFARIN SODIUM [Concomitant]
  9. TRAZODONE HCL [Concomitant]
  10. ADVAIR [Concomitant]
  11. IPRATROPIUM BROMIDE W/SALBUTAMOL [Concomitant]
  12. TRICOR [Concomitant]

REACTIONS (2)
  - DEATH [None]
  - GLOSSODYNIA [None]
